FAERS Safety Report 8973954 (Version 1)
Quarter: 2012Q4

REPORT INFORMATION
  Report Type: 
  Country: IN (occurrence: IN)
  Receive Date: 20121218
  Receipt Date: 20121218
  Transmission Date: 20130627
  Serious: Yes (Death, Hospitalization, Other)
  Sender: FDA-Public Use
  Company Number: PHHY2012IN116038

PATIENT
  Age: 65 Year
  Sex: Male

DRUGS (1)
  1. ASUNRA [Suspect]
     Indication: THALASSAEMIA
     Dosage: 1600 mg, QD
     Route: 048
     Dates: start: 20120124, end: 20121104

REACTIONS (2)
  - Dengue fever [Fatal]
  - General physical health deterioration [Unknown]
